FAERS Safety Report 5380886-7 (Version None)
Quarter: 2007Q3

REPORT INFORMATION
  Report Type: 
  Country: None (occurrence: None)
  Receive Date: 20070706
  Receipt Date: 20070608
  Transmission Date: 20080115
  Serious: Yes (Hospitalization)
  Sender: FDA-Public Use
  Company Number: LT-ASTRAZENECA-2007SE03366

PATIENT
  Age: 26 Year
  Sex: Female

DRUGS (4)
  1. SEROQUEL [Suspect]
     Indication: SCHIZOAFFECTIVE DISORDER
     Route: 048
     Dates: end: 20070501
  2. SEROQUEL [Suspect]
     Route: 048
     Dates: start: 20070501, end: 20070526
  3. PAROXETINUM [Concomitant]
     Indication: SCHIZOAFFECTIVE DISORDER
     Route: 048
  4. HALOPERIDOL DECANOATE [Concomitant]
     Indication: SCHIZOAFFECTIVE DISORDER
     Route: 042

REACTIONS (1)
  - SCHIZOAFFECTIVE DISORDER [None]
